FAERS Safety Report 8485825-8 (Version None)
Quarter: 2012Q3

REPORT INFORMATION
  Report Type: 
  Country: None (occurrence: None)
  Receive Date: 20120703
  Receipt Date: 20120626
  Transmission Date: 20120928
  Serious: Yes (Hospitalization)
  Sender: FDA-Public Use
  Company Number: PHHY2012IT055892

PATIENT
  Sex: Male

DRUGS (8)
  1. CLONIDINE [Concomitant]
  2. OMEPRAZOLE [Concomitant]
  3. PIPERACILLIN AND TAZOBACTAM [Concomitant]
     Dates: start: 20120516, end: 20120608
  4. FUROSEMIDE [Concomitant]
  5. ENALAPRIL MALEATE [Concomitant]
  6. RISPERIDONE [Suspect]
     Indication: PSYCHOMOTOR HYPERACTIVITY
     Dosage: 1 MG, BID
     Route: 048
     Dates: start: 20120520, end: 20120608
  7. HALOPERIDOL [Concomitant]
     Dates: start: 20120518, end: 20120531
  8. DOXAZOSIN MESYLATE [Concomitant]

REACTIONS (5)
  - SEPSIS [None]
  - PROCALCITONIN INCREASED [None]
  - LEUKOPENIA [None]
  - THROMBOCYTOPENIA [None]
  - HYPERTHERMIA [None]
